FAERS Safety Report 13226019 (Version 2)
Quarter: 2018Q1

REPORT INFORMATION
  Report Type: Spontaneous
  Country: US (occurrence: US)
  Receive Date: 20170213
  Receipt Date: 20180130
  Transmission Date: 20180508
  Serious: No
  Sender: FDA-Public Use
  Company Number: US-ACORDA-ACO_131320_2016

PATIENT
  Age: 58 Year
  Sex: Female

DRUGS (3)
  1. AMPYRA [Suspect]
     Active Substance: DALFAMPRIDINE
     Indication: MULTIPLE SCLEROSIS
  2. AMPYRA [Suspect]
     Active Substance: DALFAMPRIDINE
     Indication: GAIT DISTURBANCE
     Dosage: 10 MG, BID
     Route: 048
     Dates: start: 201607
  3. PLEGRIDY [Suspect]
     Active Substance: PEGINTERFERON BETA-1A
     Indication: MULTIPLE SCLEROSIS
     Dosage: UNK (INJECTION)
     Route: 065
     Dates: start: 201607, end: 201612

REACTIONS (8)
  - Injection site pain [Recovering/Resolving]
  - Injection site pruritus [Recovering/Resolving]
  - Injection site vesicles [Recovering/Resolving]
  - Erythema [Not Recovered/Not Resolved]
  - Rash [Recovering/Resolving]
  - Skin abrasion [Recovering/Resolving]
  - Hypersensitivity [Recovering/Resolving]
  - Injection site swelling [Recovering/Resolving]

NARRATIVE: CASE EVENT DATE: 201607
